FAERS Safety Report 19570112 (Version 1)
Quarter: 2021Q3

REPORT INFORMATION
  Report Type: Spontaneous
  Country: GB (occurrence: GB)
  Receive Date: 20210715
  Receipt Date: 20210715
  Transmission Date: 20211014
  Serious: Yes (Other)
  Sender: FDA-Public Use
  Company Number: GB-JNJFOC-20210722685

PATIENT
  Age: 76 Year
  Sex: Female

DRUGS (2)
  1. VELCADE [Suspect]
     Active Substance: BORTEZOMIB
     Indication: ILL-DEFINED DISORDER
     Dosage: 2.5MG WEEKLY FOR 2 WEEKS THEN A WEEK BREAK
     Route: 058
  2. DARZALEX [Suspect]
     Active Substance: DARATUMUMAB
     Indication: ILL-DEFINED DISORDER
     Dosage: 1800MG EVERY 3 WEEKS
     Route: 058

REACTIONS (1)
  - Hypoglycaemia [Unknown]
